FAERS Safety Report 5483687-4 (Version None)
Quarter: 2007Q4

REPORT INFORMATION
  Report Type: 
  Country: None (occurrence: None)
  Receive Date: 20071012
  Receipt Date: 20071001
  Transmission Date: 20080405
  Serious: Yes (Hospitalization)
  Sender: FDA-Public Use
  Company Number: JP-AMGEN-US247437

PATIENT
  Sex: Female

DRUGS (11)
  1. ENBREL [Suspect]
     Indication: RHEUMATOID ARTHRITIS
     Route: 058
     Dates: start: 20070918, end: 20070930
  2. LORCAM [Suspect]
     Indication: RHEUMATOID ARTHRITIS
     Route: 048
     Dates: start: 20070508, end: 20070921
  3. MOVER [Suspect]
     Indication: RHEUMATOID ARTHRITIS
     Route: 048
     Dates: start: 20070508, end: 20070921
  4. BUCILLAMINE [Suspect]
     Indication: RHEUMATOID ARTHRITIS
     Route: 048
     Dates: start: 20070518, end: 20070921
  5. LIMETHASONE [Concomitant]
     Indication: RHEUMATOID ARTHRITIS
     Route: 042
     Dates: start: 20070328, end: 20070921
  6. XYLOCAINE [Concomitant]
     Indication: BACK PAIN
     Route: 030
     Dates: start: 20070511, end: 20070930
  7. ZOLPIDEM TARTRATE [Concomitant]
     Indication: INSOMNIA
     Route: 048
     Dates: start: 20070831, end: 20070921
  8. PREDONINE [Concomitant]
     Indication: RHEUMATOID ARTHRITIS
     Route: 048
     Dates: start: 20070508, end: 20070921
  9. BONALON [Concomitant]
     Indication: OSTEOPOROSIS
     Dosage: UNKNOWN
     Route: 048
     Dates: start: 20070803, end: 20070921
  10. SUVENYL [Concomitant]
     Indication: RHEUMATOID ARTHRITIS
     Dosage: 2 DOSE FORMS/WEEK (IR) INJ
     Dates: start: 20070328, end: 20070930
  11. KELNAC [Concomitant]
     Indication: RHEUMATOID ARTHRITIS
     Route: 048
     Dates: start: 20070508, end: 20070921

REACTIONS (1)
  - NEPHROTIC SYNDROME [None]
